FAERS Safety Report 5446264-7 (Version None)
Quarter: 2007Q3

REPORT INFORMATION
  Report Type: 
  Country: None (occurrence: None)
  Receive Date: 20070731
  Receipt Date: 20060725
  Transmission Date: 20080115
  Serious: Yes (Other)
  Sender: FDA-Public Use
  Company Number: US-2006-020285

PATIENT
  Age: 25 Year
  Sex: Female
  Weight: 68 kg

DRUGS (1)
  1. MAGNEVIST [Suspect]
     Indication: NUCLEAR MAGNETIC RESONANCE IMAGING BRAIN
     Dosage: 14 ML, 1 DOSE, INTRAVENOUS
     Route: 042
     Dates: start: 20060725, end: 20060725

REACTIONS (8)
  - BLOOD PRESSURE DECREASED [None]
  - HEADACHE [None]
  - HYPERHIDROSIS [None]
  - LIP SWELLING [None]
  - NAUSEA [None]
  - PARAESTHESIA ORAL [None]
  - URTICARIA [None]
  - VOMITING [None]
